FAERS Safety Report 14321870 (Version 1)
Quarter: 2017Q4

REPORT INFORMATION
  Report Type: Report from Study
  Country: CN (occurrence: CN)
  Receive Date: 20171225
  Receipt Date: 20171225
  Transmission Date: 20180321
  Serious: Yes (Other)
  Sender: FDA-Public Use
  Company Number: CN-ROCHE-2038603

PATIENT
  Sex: Female
  Weight: 48 kg

DRUGS (1)
  1. AVASTIN [Suspect]
     Active Substance: BEVACIZUMAB
     Indication: RECTAL CANCER
     Route: 041
     Dates: start: 20161010

REACTIONS (3)
  - Nasopharyngitis [Unknown]
  - Transaminases increased [Unknown]
  - Liver injury [Unknown]
